FAERS Safety Report 4883601-6 (Version None)
Quarter: 2006Q1

REPORT INFORMATION
  Report Type: 
  Country: None (occurrence: None)
  Receive Date: 20060117
  Receipt Date: 20060117
  Transmission Date: 20060701
  Serious: Yes (Life-Threatening)
  Sender: FDA-Public Use
  Company Number: None

PATIENT
  Age: 77 Year
  Sex: Female
  Weight: 64.6 kg

DRUGS (15)
  1. LEVAQUIN [Suspect]
     Indication: SEPSIS
     Dosage: 250 MG   Q48 HOURS   IV DRIP
     Route: 041
     Dates: start: 20060110, end: 20060112
  2. LASIX [Concomitant]
  3. MORPHINE [Concomitant]
  4. SOLU-MEDROL [Concomitant]
  5. ALBUTEROL SULFATE AND IPRATROPIUM BROMIDE [Concomitant]
  6. NITROGLYCERIN [Concomitant]
  7. ASPIRIN [Concomitant]
  8. HEPARIN [Concomitant]
  9. HECTOROL [Concomitant]
  10. ALLEGRA [Concomitant]
  11. TUMS [Concomitant]
  12. NEPHRO-VITE [Concomitant]
  13. MAVIK [Concomitant]
  14. LIPITOR [Concomitant]
  15. PROTONIX [Concomitant]

REACTIONS (2)
  - ATRIAL FIBRILLATION [None]
  - ATRIAL FLUTTER [None]
